FAERS Safety Report 6434076-7 (Version None)
Quarter: 2009Q4

REPORT INFORMATION
  Report Type: 
  Country: None (occurrence: None)
  Receive Date: 20091110
  Receipt Date: 20090702
  Transmission Date: 20100525
  Serious: No
  Sender: FDA-Public Use
  Company Number: US-ASTRAZENECA-2009SE10234

PATIENT
  Sex: Female

DRUGS (5)
  1. PRILOSEC OTC [Suspect]
     Dosage: 1 TABLET, 1 /DAY
     Route: 048
     Dates: start: 20030101
  2. CARAFATE [Concomitant]
     Dosage: UNKNOWN
  3. PANCRELIPASE [Concomitant]
     Dosage: UNKNOWN
  4. PAXIL [Concomitant]
     Dosage: UNKNOWN
  5. PILOCARPINE HYDROCHLORIDE [Concomitant]
     Dosage: UNKNOWN

REACTIONS (2)
  - DYSPEPSIA [None]
  - INCORRECT DRUG ADMINISTRATION DURATION [None]
